FAERS Safety Report 4974959-8 (Version None)
Quarter: 2006Q2

REPORT INFORMATION
  Report Type: 
  Country: None (occurrence: None)
  Receive Date: 20060418
  Receipt Date: 20060407
  Transmission Date: 20061013
  Serious: Yes (Other)
  Sender: FDA-Public Use
  Company Number: PT-JNJFOC-20060202562

PATIENT
  Sex: Male
  Weight: 60 kg

DRUGS (4)
  1. REMICADE [Suspect]
     Indication: CROHN'S DISEASE
     Dosage: 5MG/KG - 19 INFUSIONS
     Route: 042
  2. AZATHIOPRINE [Concomitant]
  3. PANTOPRAZOL [Concomitant]
  4. ALATROFLOXACIN [Concomitant]

REACTIONS (1)
  - PULMONARY TUBERCULOSIS [None]
